FAERS Safety Report 25223887 (Version 2)
Quarter: 2025Q2

REPORT INFORMATION
  Report Type: Report from Study
  Country: US (occurrence: US)
  Receive Date: 20250422
  Receipt Date: 20250529
  Transmission Date: 20250716
  Serious: No
  Sender: ACADIA PHARMACEUTICALS
  Company Number: US-ACADIA PHARMACEUTICALS INC.-ACA-2025-PIM-004437

PATIENT
  Sex: Male

DRUGS (11)
  1. NUPLAZID [Suspect]
     Active Substance: PIMAVANSERIN TARTRATE
     Indication: Psychotic disorder
     Dosage: 34 MILLIGRAM, QD
     Route: 048
     Dates: start: 20241228
  2. NUPLAZID [Suspect]
     Active Substance: PIMAVANSERIN TARTRATE
     Indication: Hallucination
  3. NUPLAZID [Suspect]
     Active Substance: PIMAVANSERIN TARTRATE
     Indication: Parkinson^s disease psychosis
  4. AMANTADINE [Concomitant]
     Active Substance: AMANTADINE
  5. DONEPEZIL [Concomitant]
     Active Substance: DONEPEZIL
  6. DROXIDOPA [Concomitant]
     Active Substance: DROXIDOPA
  7. FLUDROCORTISONE [Concomitant]
     Active Substance: FLUDROCORTISONE
  8. GABAPENTIN [Concomitant]
     Active Substance: GABAPENTIN
  9. OXYBUTYNIN [Concomitant]
     Active Substance: OXYBUTYNIN
  10. TAMSULOSIN [Concomitant]
     Active Substance: TAMSULOSIN
  11. TESTOSTERONE [Concomitant]
     Active Substance: TESTOSTERONE

REACTIONS (1)
  - Product dose omission issue [Not Recovered/Not Resolved]
